FAERS Safety Report 24147038 (Version 1)
Quarter: 2024Q3

REPORT INFORMATION
  Report Type: Spontaneous
  Country: US (occurrence: None)
  Receive Date: 20240726
  Receipt Date: 20240726
  Transmission Date: 20241016
  Serious: No
  Sender: Public
  Company Number: None

PATIENT
  Age: 85 Year
  Sex: Female
  Weight: 75.15 kg

DRUGS (14)
  1. DULOXETINE [Suspect]
     Active Substance: DULOXETINE
     Indication: Anxiety
     Dosage: 1 CAPSULE AT BEDTIME ORAL
     Route: 048
     Dates: start: 20240422, end: 20240717
  2. DULOXETINE [Suspect]
     Active Substance: DULOXETINE
     Indication: Myalgia
  3. DULOXETINE [Suspect]
     Active Substance: DULOXETINE
     Indication: Arthralgia
  4. DULOXETINE [Suspect]
     Active Substance: DULOXETINE
     Indication: Arthralgia
  5. DULOXETINE [Suspect]
     Active Substance: DULOXETINE
     Indication: Arthralgia
  6. CRESTOR [Concomitant]
     Active Substance: ROSUVASTATIN CALCIUM
  7. LOSARTAN [Concomitant]
     Active Substance: LOSARTAN
  8. VITAMIN D [Concomitant]
     Active Substance: VITAMIN D NOS
  9. LACTASE ENZYME WITH BENEDRYL [Concomitant]
  10. LORATADINE [Concomitant]
     Active Substance: LORATADINE
  11. UNSPECIFIED INGREDIENT [Concomitant]
     Active Substance: UNSPECIFIED INGREDIENT
  12. BACITRACIN [Concomitant]
     Active Substance: BACITRACIN
  13. HYDROCORTISONE [Concomitant]
     Active Substance: HYDROCORTISONE\HYDROCORTISONE ACETATE
  14. IBUPROFEN [Concomitant]
     Active Substance: IBUPROFEN

REACTIONS (19)
  - Arthritis [None]
  - Bursitis [None]
  - Neuralgia [None]
  - Drug ineffective [None]
  - Insomnia [None]
  - Somnolence [None]
  - Disorientation [None]
  - Somnolence [None]
  - Dysstasia [None]
  - Gait disturbance [None]
  - Gait disturbance [None]
  - Fatigue [None]
  - Pain [None]
  - Gastrooesophageal reflux disease [None]
  - Abnormal dreams [None]
  - Electric shock sensation [None]
  - Withdrawal syndrome [None]
  - Pain [None]
  - Anxiety [None]

NARRATIVE: CASE EVENT DATE: 20240717
